FAERS Safety Report 13427318 (Version 2)
Quarter: 2017Q2

REPORT INFORMATION
  Report Type: Spontaneous
  Country: JP (occurrence: JP)
  Receive Date: 20170411
  Receipt Date: 20170609
  Transmission Date: 20170830
  Serious: Yes (Other)
  Sender: FDA-Public Use
  Company Number: JP-BAYER-2017-062583

PATIENT
  Age: 49 Year
  Sex: Female

DRUGS (4)
  1. OZAGREL [Concomitant]
     Active Substance: OZAGREL
     Dosage: 80 MG, QD
     Route: 041
  2. HEPARIN [Interacting]
     Active Substance: HEPARIN SODIUM
     Dosage: UNK
     Route: 041
  3. BAYASPIRIN 100 MG [Suspect]
     Active Substance: ASPIRIN
     Dosage: 200 MG, QD
     Route: 050
  4. CLOPIDOGREL [Interacting]
     Active Substance: CLOPIDOGREL BISULFATE
     Dosage: 300 MG, QD
     Route: 050

REACTIONS (4)
  - Cerebral infarction [None]
  - Cerebral vasoconstriction [None]
  - Drug interaction [None]
  - Incorrect route of drug administration [None]
